FAERS Safety Report 13360425 (Version 1)
Quarter: 2017Q1

REPORT INFORMATION
  Report Type: Spontaneous
  Country: US (occurrence: US)
  Receive Date: 20170322
  Receipt Date: 20170322
  Transmission Date: 20170429
  Serious: No
  Sender: FDA-Public Use
  Company Number: US-TEVA-751227USA

PATIENT
  Age: 48 Year
  Sex: Female
  Weight: 60.38 kg

DRUGS (3)
  1. NUVIGIL [Suspect]
     Active Substance: ARMODAFINIL
     Indication: SLEEP APNOEA SYNDROME
     Dates: start: 20170311
  2. LEXAPRO [Concomitant]
     Active Substance: ESCITALOPRAM OXALATE
  3. TENORMIN [Concomitant]
     Active Substance: ATENOLOL

REACTIONS (9)
  - Malaise [Unknown]
  - Stupor [Unknown]
  - Hyperhidrosis [Unknown]
  - Fatigue [Unknown]
  - Nausea [Unknown]
  - Confusional state [Unknown]
  - Sensory disturbance [Unknown]
  - Headache [Unknown]
  - Pain in extremity [Unknown]

NARRATIVE: CASE EVENT DATE: 20170311
